FAERS Safety Report 7403445-0 (Version None)
Quarter: 2011Q2

REPORT INFORMATION
  Report Type: 
  Country: None (occurrence: None)
  Receive Date: 20110408
  Receipt Date: 20110330
  Transmission Date: 20111010
  Serious: Yes (Other)
  Sender: FDA-Public Use
  Company Number: A0921811A

PATIENT
  Age: 20 Year
  Sex: Female

DRUGS (2)
  1. LAMICTAL [Suspect]
     Dosage: 100MGD PER DAY
     Route: 048
     Dates: start: 20060101
  2. ESCITALOPRAM [Concomitant]
     Dates: start: 20090101

REACTIONS (4)
  - NEUTROPENIA [None]
  - BLOOD DISORDER [None]
  - LEUKOPENIA [None]
  - ANAEMIA [None]
